FAERS Safety Report 16177093 (Version 2)
Quarter: 2019Q2

REPORT INFORMATION
  Report Type: Report from Study
  Country: None (occurrence: AR)
  Receive Date: 20190410
  Receipt Date: 20190427
  Transmission Date: 20190711
  Serious: Yes (Other)
  Sender: FDA-Public Use
  Company Number: AR-ABBVIE-19K-007-2736349-00

PATIENT
  Age: 74 Year
  Sex: Female
  Weight: 80 kg

DRUGS (1)
  1. HUMIRA [Suspect]
     Active Substance: ADALIMUMAB
     Indication: COLITIS ULCERATIVE
     Route: 058
     Dates: start: 20170404

REACTIONS (9)
  - Syncope [Unknown]
  - Loss of consciousness [Unknown]
  - Overweight [Unknown]
  - Anaemia [Unknown]
  - Retinal detachment [Unknown]
  - Haemorrhage [Recovering/Resolving]
  - Cataract [Not Recovered/Not Resolved]
  - Injury [Unknown]
  - Conjunctivitis [Unknown]

NARRATIVE: CASE EVENT DATE: 2018
